FAERS Safety Report 7552138-8 (Version None)
Quarter: 2011Q2

REPORT INFORMATION
  Report Type: 
  Country: None (occurrence: None)
  Receive Date: 20110609
  Receipt Date: 20110527
  Transmission Date: 20111010
  Serious: Yes (Death, Hospitalization)
  Sender: FDA-Public Use
  Company Number: UTC-006211

PATIENT
  Age: 52 Year
  Sex: Female

DRUGS (3)
  1. REMODULIN [Suspect]
     Indication: PULMONARY ARTERIAL HYPERTENSION
     Dosage: INTRAVENOUS
     Route: 042
     Dates: start: 20110401
  2. BOSENTAN (BOSENTAN) [Concomitant]
  3. SILDENAFIL CITRATE [Concomitant]

REACTIONS (1)
  - RIGHT VENTRICULAR FAILURE [None]
